FAERS Safety Report 25706384 (Version 1)
Quarter: 2025Q3

REPORT INFORMATION
  Report Type: Spontaneous
  Country: US (occurrence: None)
  Receive Date: 20250820
  Receipt Date: 20250820
  Transmission Date: 20251020
  Serious: Yes (Hospitalization)
  Sender: FDA-CTU
  Company Number: None

PATIENT
  Sex: Female

DRUGS (11)
  1. TREMFYA [Suspect]
     Active Substance: GUSELKUMAB
     Indication: Psoriatic arthropathy
     Route: 058
     Dates: start: 20240131
  2. ASPIRIN 81 TAB 81 MG EC [Concomitant]
  3. AZATHIOPRINE [Concomitant]
     Active Substance: AZATHIOPRINE
  4. CALCIPOTRIEN SOL 0.005% [Concomitant]
  5. COO10 CAP 100MG [Concomitant]
  6. DIPROLENE OIN 0.05% [Concomitant]
  7. ENBREL [Concomitant]
     Active Substance: ETANERCEPT
  8. EZETIMIBE [Concomitant]
     Active Substance: EZETIMIBE
  9. FOLIC ACID TAB1MG [Concomitant]
  10. IBUPROFEN TAB 600MG [Concomitant]
  11. KP VITAMIN D [Concomitant]

REACTIONS (5)
  - Urinary tract infection [None]
  - Infection [None]
  - Nephrolithiasis [None]
  - Psoriatic arthropathy [None]
  - Loss of personal independence in daily activities [None]
